FAERS Safety Report 5555096-0 (Version None)
Quarter: 2007Q4

REPORT INFORMATION
  Report Type: 
  Country: None (occurrence: None)
  Receive Date: 20071213
  Receipt Date: 20071130
  Transmission Date: 20080405
  Serious: Yes (Other)
  Sender: FDA-Public Use
  Company Number: DK-ELI_LILLY_AND_COMPANY-DK200712002300

PATIENT
  Age: 45 Year
  Sex: Male

DRUGS (4)
  1. ATOMOXETINE HCL [Suspect]
     Indication: ATTENTION DEFICIT/HYPERACTIVITY DISORDER
     Dosage: 40 MG, UNK
     Route: 048
  2. ATOMOXETINE HCL [Suspect]
     Dosage: 40 MG, EACH MORNING
     Route: 048
  3. ZOLOFT [Concomitant]
     Indication: DEPRESSION
     Dosage: 50 MG, UNK
  4. EDRONAX [Concomitant]
     Indication: DEPRESSION
     Dosage: 8 MG, UNK

REACTIONS (1)
  - HYPERTENSION [None]
